FAERS Safety Report 10611210 (Version 2)
Quarter: 2014Q4

REPORT INFORMATION
  Report Type: Spontaneous
  Country: FR (occurrence: None)
  Receive Date: 20141124
  Receipt Date: 20141215
  Transmission Date: 20150529
  Serious: Yes (Hospitalization)
  Sender: FDA-Public Use
  Company Number: FR-ZYDUS-005642

PATIENT
  Age: 82 Year
  Sex: Female

DRUGS (10)
  1. ROSUVASTATIN [Suspect]
     Active Substance: ROSUVASTATIN
     Dosage: 10.00-MG-1.00 TIMES PER-1.0DAYS
  2. AMIODARONE [Suspect]
     Active Substance: AMIODARONE
     Dosage: 0.50-MG-1.00 TIMES PER-1.00DAYS
     Dates: start: 2007, end: 20130912
  3. NITROFURANTOIN. [Suspect]
     Active Substance: NITROFURANTOIN
     Dosage: 50.00-MG-1.00 TIMES PER-1.00DAYS
     Dates: end: 20130912
  4. FUROSEMIDE (FUROSEMIDE) [Suspect]
     Active Substance: FUROSEMIDE
     Dosage: 20.00-MG-1.00 TIMES PER-1.00DAYS
     Dates: end: 20130912
  5. CARDENSIEL [Concomitant]
     Active Substance: BISOPROLOL FUMARATE
     Dosage: 1.25 MG, QD.
  6. CANDESARTAN [Suspect]
     Active Substance: CANDESARTAN
     Dosage: 16.00-MG-2.00 TIMES PER-1.0DAYS?
     Dates: start: 20130912
  7. LERCANIDIPINE [Suspect]
     Active Substance: LERCANIDIPINE
     Dosage: 10.00-MG-1.00 TIMES PER-1.00DAYS
     Route: 048
     Dates: end: 20130912
  8. ACETYLSALICYLATE LYSINE [Suspect]
     Active Substance: ASPIRIN DL-LYSINE
     Dosage: 75.00-MG-1.00 TIMES PER-1.00DAYS
     Dates: end: 20130912
  9. OMEPRAZOLE (OMEPRAZOLE) [Suspect]
     Active Substance: OMEPRAZOLE
  10. CALCIUM + VITAMIN D [Suspect]
     Active Substance: CALCIUM\VITAMIN D
     Route: 048
     Dates: end: 20130912

REACTIONS (5)
  - Pulmonary fibrosis [None]
  - Respiratory distress [None]
  - Superinfection [None]
  - Interstitial lung disease [None]
  - Respiratory alkalosis [None]
